FAERS Safety Report 9342763 (Version 1)
Quarter: 2013Q2

REPORT INFORMATION
  Report Type: Spontaneous
  Country: FR (occurrence: FR)
  Receive Date: 20130611
  Receipt Date: 20130611
  Transmission Date: 20140414
  Serious: Yes (Hospitalization)
  Sender: FDA-Public Use
  Company Number: FR-BAYER-2013-071337

PATIENT
  Age: 81 Year
  Sex: Male

DRUGS (11)
  1. CIFLOX [Suspect]
     Dosage: 400 MG, BID
     Route: 042
     Dates: start: 20130514
  2. NOROXIN [Suspect]
     Indication: URINARY TRACT INFECTION
     Dosage: 400 MG, QD
     Route: 048
     Dates: start: 20130513, end: 20130514
  3. ROCEPHINE [Suspect]
     Dosage: 1 G, QD
     Route: 042
     Dates: start: 20130514
  4. TENORMINE [Concomitant]
  5. CERIS [Concomitant]
  6. DEDROGYL [Concomitant]
  7. DOLIPRANE [Concomitant]
  8. MODOPAR [Concomitant]
  9. MODOPAR [Concomitant]
  10. PREVISCAN [Concomitant]
  11. FORLAX [Concomitant]

REACTIONS (1)
  - Rhabdomyolysis [Unknown]
